FAERS Safety Report 11250655 (Version 2)
Quarter: 2015Q3

REPORT INFORMATION
  Report Type: Spontaneous
  Country: US (occurrence: US)
  Receive Date: 20150708
  Receipt Date: 20150803
  Transmission Date: 20151125
  Serious: No
  Sender: FDA-Public Use
  Company Number: US-ELI_LILLY_AND_COMPANY-US201103001951

PATIENT
  Age: 40 Year
  Sex: Female
  Weight: 172.34 kg

DRUGS (1)
  1. ZYPREXA RELPREVV [Suspect]
     Active Substance: OLANZAPINE PAMOATE
     Indication: SCHIZOPHRENIA
     Dosage: 405 MG, UNK

REACTIONS (4)
  - Lipids increased [Unknown]
  - Hypertension [Unknown]
  - Diabetes mellitus [Unknown]
  - Blood triglycerides [Unknown]
